FAERS Safety Report 4712895-2 (Version None)
Quarter: 2005Q3

REPORT INFORMATION
  Report Type: 
  Country: None (occurrence: None)
  Receive Date: 20050713
  Receipt Date: 20050704
  Transmission Date: 20060218
  Serious: Yes (Other)
  Sender: FDA-Public Use
  Company Number: DE-JNJFOC-20050700396

PATIENT
  Age: 70 Year
  Sex: Female
  Weight: 73 kg

DRUGS (3)
  1. INFLIXIMAB [Suspect]
     Route: 042
  2. INFLIXIMAB [Suspect]
     Route: 042
  3. INFLIXIMAB [Suspect]
     Indication: RHEUMATOID ARTHRITIS
     Dosage: TRAETED FROM AN UNKNOWN DATE TILL 24 NOV 2003
     Route: 042

REACTIONS (1)
  - BREAST CANCER IN SITU [None]
